FAERS Safety Report 12676425 (Version 1)
Quarter: 2016Q3

REPORT INFORMATION
  Report Type: Spontaneous
  Country: US (occurrence: US)
  Receive Date: 20160823
  Receipt Date: 20160823
  Transmission Date: 20161109
  Serious: No
  Sender: FDA-Public Use
  Company Number: US-DRREDDYS-DRL/USA/16/0079916

PATIENT
  Age: 50 Year
  Sex: Female
  Weight: 66.22 kg

DRUGS (2)
  1. RIZATRIPTAN. [Concomitant]
     Active Substance: RIZATRIPTAN
     Indication: MIGRAINE
     Route: 048
     Dates: start: 20160518
  2. SUMATRIPTAN INJECTION USP, 6 MG/0.5 ML [Suspect]
     Active Substance: SUMATRIPTAN
     Indication: MIGRAINE
     Route: 058

REACTIONS (2)
  - Drug dose omission [Unknown]
  - Product physical issue [Unknown]

NARRATIVE: CASE EVENT DATE: 20160516
